FAERS Safety Report 8658357 (Version 3)
Quarter: 2013Q1

REPORT INFORMATION
  Report Type: Report from Study
  Country: BR (occurrence: BR)
  Receive Date: 20120710
  Receipt Date: 20130218
  Transmission Date: 20140127
  Serious: Yes (Hospitalization, Other)
  Sender: FDA-Public Use
  Company Number: BR-ROCHE-1084541

PATIENT
  Sex: Female
  Weight: 85 kg

DRUGS (7)
  1. RITUXIMAB [Suspect]
     Indication: RHEUMATOID ARTHRITIS
     Route: 042
     Dates: start: 20110402, end: 20111212
  2. RITUXIMAB [Suspect]
     Route: 042
     Dates: start: 20120802
  3. ARAVA [Concomitant]
  4. PURAN T4 [Concomitant]
  5. UNSPECIFIED DRUG [Concomitant]
     Indication: PAIN
  6. EUTHYROX [Concomitant]
  7. METHOTREXATE [Concomitant]

REACTIONS (5)
  - Weight increased [Not Recovered/Not Resolved]
  - Inflammation [Unknown]
  - Pain in extremity [Unknown]
  - Anaphylactic shock [Not Recovered/Not Resolved]
  - Hypertension [Recovered/Resolved]
